FAERS Safety Report 16909906 (Version 3)
Quarter: 2019Q4

REPORT INFORMATION
  Report Type: Report from Study
  Country: IT (occurrence: IT)
  Receive Date: 20191011
  Receipt Date: 20191023
  Transmission Date: 20200122
  Serious: Yes (Death)
  Sender: FDA-Public Use
  Company Number: IT-CELGENEUS-ITA-20191003008

PATIENT
  Age: 81 Year
  Sex: Male

DRUGS (6)
  1. ENASIDENIB [Suspect]
     Active Substance: ENASIDENIB
     Indication: ACUTE MYELOID LEUKAEMIA
     Dosage: 100 MILLIGRAM
     Route: 048
     Dates: start: 20190920, end: 20190924
  2. CARDIRENE [Concomitant]
     Active Substance: ASPIRIN DL-LYSINE
     Indication: HYPERTENSION
     Dosage: 7 MILLIGRAM
     Route: 048
     Dates: end: 20191007
  3. RAMIPRIL. [Concomitant]
     Active Substance: RAMIPRIL
     Indication: HYPERTENSION
     Dosage: 5 MILLIGRAM
     Route: 048
     Dates: end: 20191007
  4. RETACRIT [Concomitant]
     Active Substance: EPOETIN ALFA-EPBX
     Indication: ANAEMIA
     Dosage: 40000 IU (INTERNATIONAL UNIT)
     Route: 058
     Dates: start: 20190909, end: 20190919
  5. REPAGLIDE [Concomitant]
     Indication: TYPE 2 DIABETES MELLITUS
     Dosage: 3 MILLIGRAM
     Route: 048
     Dates: end: 20190906
  6. TIOGUANINA [Concomitant]
     Active Substance: THIOGUANINE ANHYDROUS
     Indication: ACUTE MYELOID LEUKAEMIA
     Dosage: 20 MILLIGRAM
     Route: 048
     Dates: start: 20190909, end: 20190919

REACTIONS (1)
  - Pneumonia [Fatal]

NARRATIVE: CASE EVENT DATE: 20190924
